FAERS Safety Report 24873377 (Version 1)
Quarter: 2025Q1

REPORT INFORMATION
  Report Type: Spontaneous
  Country: US (occurrence: US)
  Receive Date: 20250122
  Receipt Date: 20250122
  Transmission Date: 20250409
  Serious: No
  Sender: SANOFI AVENTIS
  Company Number: US-SA-2025SA019139

PATIENT
  Sex: Male

DRUGS (4)
  1. DUPIXENT [Suspect]
     Active Substance: DUPILUMAB
     Indication: Dermatitis atopic
     Dosage: 300 MG, QOW
     Route: 058
     Dates: start: 20191227
  2. DESONIDE [Concomitant]
     Active Substance: DESONIDE
  3. METHOTREXATE [Concomitant]
     Active Substance: METHOTREXATE
  4. TRIAMCINOLONE [Concomitant]
     Active Substance: TRIAMCINOLONE

REACTIONS (2)
  - Skin papilloma [Unknown]
  - Drug ineffective [Unknown]
